FAERS Safety Report 5339296-0 (Version None)
Quarter: 2007Q2

REPORT INFORMATION
  Report Type: 
  Country: None (occurrence: None)
  Receive Date: 20070530
  Receipt Date: 20070521
  Transmission Date: 20071010
  Serious: Yes (Hospitalization, Other)
  Sender: FDA-Public Use
  Company Number: FR-MERCK-0701FRA00046

PATIENT
  Age: 36 Year
  Sex: Female
  Weight: 73 kg

DRUGS (11)
  1. EMEND [Suspect]
     Indication: PROPHYLAXIS OF NAUSEA AND VOMITING
     Route: 048
     Dates: start: 20061121, end: 20061121
  2. EMEND [Suspect]
     Route: 048
     Dates: start: 20061122, end: 20061123
  3. EMEND [Suspect]
     Route: 048
     Dates: start: 20061212, end: 20061212
  4. EMEND [Suspect]
     Route: 048
     Dates: start: 20061213, end: 20061214
  5. FLUOROURACIL [Concomitant]
     Indication: BREAST CANCER
     Route: 042
     Dates: start: 20061121, end: 20061121
  6. FLUOROURACIL [Concomitant]
     Route: 042
     Dates: start: 20061212, end: 20061212
  7. EPIRUBICIN HYDROCHLORIDE [Concomitant]
     Indication: BREAST CANCER
     Route: 042
     Dates: start: 20061121, end: 20061121
  8. EPIRUBICIN HYDROCHLORIDE [Concomitant]
     Route: 041
     Dates: start: 20061212, end: 20061212
  9. PRAZEPAM [Concomitant]
     Indication: ANXIETY
     Route: 048
  10. CYCLOPHOSPHAMIDE [Concomitant]
     Indication: BREAST CANCER
     Route: 042
     Dates: start: 20061121, end: 20061121
  11. CYCLOPHOSPHAMIDE [Concomitant]
     Route: 042
     Dates: start: 20061212, end: 20061212

REACTIONS (2)
  - DYSURIA [None]
  - URINARY RETENTION [None]
